FAERS Safety Report 9320923 (Version 1)
Quarter: 2013Q2

REPORT INFORMATION
  Report Type: Spontaneous
  Country: US (occurrence: US)
  Receive Date: 20130531
  Receipt Date: 20130531
  Transmission Date: 20140414
  Serious: Yes (Life-Threatening, Hospitalization)
  Sender: FDA-Public Use
  Company Number: PHEH2013US011741

PATIENT
  Age: 65 Year
  Sex: Female

DRUGS (1)
  1. AFINITOR [Suspect]
     Indication: HER-2 POSITIVE BREAST CANCER
     Dosage: 5 MG/KG, QD
     Route: 048
     Dates: start: 20130426, end: 20130510

REACTIONS (1)
  - Arrhythmia [Recovering/Resolving]
